FAERS Safety Report 5117964-3 (Version None)
Quarter: 2006Q3

REPORT INFORMATION
  Report Type: 
  Country: None (occurrence: None)
  Receive Date: 20060925
  Receipt Date: 20060907
  Transmission Date: 20061208
  Serious: Yes (Hospitalization)
  Sender: FDA-Public Use
  Company Number: DSA_28482_2006

PATIENT
  Age: 84 Year
  Sex: Male

DRUGS (8)
  1. LORAZEPAM [Suspect]
     Dosage: 1 MG QD PO
     Route: 048
     Dates: end: 20060522
  2. PREVISCAN [Suspect]
     Dosage: 25 MG Q DAY PO
     Route: 048
     Dates: end: 20060522
  3. EUPANTOL /01263201/ [Suspect]
     Dosage: 40 MG Q DAY PO
     Route: 048
     Dates: end: 20060522
  4. LORAZEPAM [Concomitant]
  5. DIGOXIN [Concomitant]
  6. GLUCOR [Concomitant]
  7. NOVONORM [Concomitant]
  8. NORSET [Concomitant]

REACTIONS (4)
  - HAEMATURIA [None]
  - INTERNATIONAL NORMALISED RATIO INCREASED [None]
  - THROMBOSIS [None]
  - URINARY RETENTION [None]
